FAERS Safety Report 5118702-0 (Version None)
Quarter: 2006Q4

REPORT INFORMATION
  Report Type: 
  Country: None (occurrence: None)
  Receive Date: 20061002
  Receipt Date: 20060125
  Transmission Date: 20070319
  Serious: Yes (Other)
  Sender: FDA-Public Use
  Company Number: US-ROCHE-433851

PATIENT
  Age: 16 Year
  Sex: Male
  Weight: 77.1 kg

DRUGS (5)
  1. ACCUTANE [Suspect]
     Indication: ACNE
     Route: 048
     Dates: start: 19960615, end: 19990615
  2. ACCUTANE [Suspect]
     Route: 048
     Dates: start: 20020307, end: 20020608
  3. TYLENOL [Concomitant]
  4. TUMS [Concomitant]
     Indication: ABDOMINAL PAIN
  5. ZOLOFT [Concomitant]
     Indication: DEPRESSION
     Dates: start: 19970615

REACTIONS (40)
  - ACNE [None]
  - ANGER [None]
  - ANOGENITAL WARTS [None]
  - ASTHENIA [None]
  - BACK PAIN [None]
  - BIPOLAR DISORDER [None]
  - BLOOD TRIGLYCERIDES INCREASED [None]
  - COLITIS [None]
  - DECREASED APPETITE [None]
  - DEPRESSED MOOD [None]
  - DEPRESSION [None]
  - DISTURBANCE IN ATTENTION [None]
  - EPISTAXIS [None]
  - FEAR [None]
  - FEELINGS OF WORTHLESSNESS [None]
  - FLIGHT OF IDEAS [None]
  - GRANDIOSITY [None]
  - HAEMORRHOIDAL HAEMORRHAGE [None]
  - INCREASED APPETITE [None]
  - INFLAMMATION [None]
  - INFLAMMATORY BOWEL DISEASE [None]
  - INITIAL INSOMNIA [None]
  - INSOMNIA [None]
  - IRRITABILITY [None]
  - IRRITABLE BOWEL SYNDROME [None]
  - MAJOR DEPRESSION [None]
  - NECK INJURY [None]
  - PAIN [None]
  - POLYP COLORECTAL [None]
  - RASH MACULAR [None]
  - RASH PAPULAR [None]
  - RECTAL HAEMORRHAGE [None]
  - RESTLESSNESS [None]
  - SCAR [None]
  - SELF ESTEEM DECREASED [None]
  - SKIN HAEMORRHAGE [None]
  - SUICIDAL IDEATION [None]
  - TEARFULNESS [None]
  - THINKING ABNORMAL [None]
  - WEIGHT DECREASED [None]
